FAERS Safety Report 8348064-7 (Version None)
Quarter: 2012Q2

REPORT INFORMATION
  Report Type: 
  Country: None (occurrence: None)
  Receive Date: 20120509
  Receipt Date: 20100701
  Transmission Date: 20120825
  Serious: No
  Sender: FDA-Public Use
  Company Number: US-TEVA-2010003571

PATIENT
  Sex: Female
  Weight: 70.37 kg

DRUGS (1)
  1. NUVIGIL [Suspect]
     Indication: NARCOLEPSY
     Route: 048
     Dates: start: 20100401

REACTIONS (5)
  - WEIGHT INCREASED [None]
  - PANIC ATTACK [None]
  - HEADACHE [None]
  - PALPITATIONS [None]
  - DRUG INEFFECTIVE [None]
